FAERS Safety Report 5556912-9 (Version None)
Quarter: 2007Q4

REPORT INFORMATION
  Report Type: 
  Country: None (occurrence: None)
  Receive Date: 20071214
  Receipt Date: 20071206
  Transmission Date: 20080405
  Serious: Yes (Hospitalization)
  Sender: FDA-Public Use
  Company Number: PHBS2007BR20583

PATIENT
  Age: 24 Year
  Sex: Male

DRUGS (1)
  1. LEPONEX [Suspect]
     Indication: SCHIZOPHRENIA
     Dosage: 400 MG/DAY
     Route: 048

REACTIONS (2)
  - AGITATION [None]
  - SCHIZOPHRENIA [None]
